FAERS Safety Report 8419154-5 (Version None)
Quarter: 2012Q2

REPORT INFORMATION
  Report Type: 
  Country: None (occurrence: None)
  Receive Date: 20120530
  Receipt Date: 20120515
  Transmission Date: 20120825
  Serious: Yes (Other)
  Sender: FDA-Public Use
  Company Number: 2012MA006227

PATIENT
  Sex: Female

DRUGS (2)
  1. EPIRUBICIN HYDROCHLORIDE [Suspect]
     Indication: INFLAMMATORY CARCINOMA OF THE BREAST
     Dosage: 75 MG/MM^2;Q21D
  2. CYCLOPHOSPHAMIDE [Suspect]
     Dosage: 1200 MG/MM^2;Q21D

REACTIONS (3)
  - PREMATURE LABOUR [None]
  - MATERNAL EXPOSURE DURING PREGNANCY [None]
  - FOETAL DEATH [None]
